FAERS Safety Report 11125378 (Version 1)
Quarter: 2015Q2

REPORT INFORMATION
  Report Type: Spontaneous
  Country: US (occurrence: US)
  Receive Date: 20150520
  Receipt Date: 20150520
  Transmission Date: 20150821
  Serious: Yes (Hospitalization)
  Sender: FDA-Public Use
  Company Number: US-ACTELION-A-US2015-118013

PATIENT
  Age: 68 Year
  Sex: Male

DRUGS (1)
  1. OPSUMIT [Suspect]
     Active Substance: MACITENTAN
     Indication: PULMONARY ARTERIAL HYPERTENSION
     Dosage: 10 MG, UNK
     Route: 048
     Dates: start: 20150423, end: 20150502

REACTIONS (8)
  - Fatigue [Unknown]
  - Cardiac failure congestive [Unknown]
  - Nausea [Unknown]
  - Pneumonia [Unknown]
  - Abdominal pain upper [Unknown]
  - Oedema [Unknown]
  - Chromaturia [Unknown]
  - Liver disorder [Unknown]
